FAERS Safety Report 5931256-1 (Version None)
Quarter: 2008Q4

REPORT INFORMATION
  Report Type: 
  Country: None (occurrence: None)
  Receive Date: 20081027
  Receipt Date: 20080813
  Transmission Date: 20090506
  Serious: No
  Sender: FDA-Public Use
  Company Number: US-BAYER-200832058NA

PATIENT
  Age: 23 Year
  Sex: Female
  Weight: 107 kg

DRUGS (1)
  1. ULTRAVIST 370 [Suspect]
     Indication: COMPUTERISED TOMOGRAM HEAD
     Dosage: TOTAL DAILY DOSE: 80 ML  UNIT DOSE: 500 ML
     Route: 042
     Dates: start: 20080813, end: 20080813

REACTIONS (5)
  - DYSPHAGIA [None]
  - NASAL CONGESTION [None]
  - PRURITUS [None]
  - SNEEZING [None]
  - URTICARIA [None]
